FAERS Safety Report 15211366 (Version 1)
Quarter: 2018Q3

REPORT INFORMATION
  Report Type: Report from Study
  Country: DE (occurrence: DE)
  Receive Date: 20180729
  Receipt Date: 20180729
  Transmission Date: 20181010
  Serious: Yes (Other)
  Sender: FDA-Public Use
  Company Number: DE-TEVA-2017-DE-836769

PATIENT
  Age: 84 Year
  Sex: Male
  Weight: 82 kg

DRUGS (12)
  1. REVLIMID [Suspect]
     Active Substance: LENALIDOMIDE
     Route: 065
     Dates: start: 20170622, end: 20170816
  2. PRAVASTATIN ACCORD [Concomitant]
     Active Substance: PRAVASTATIN
     Indication: PROPHYLAXIS
     Dosage: 20 MILLIGRAM
     Route: 048
  3. QUERTO [Concomitant]
     Indication: RESPIRATORY FAILURE
     Dosage: 6.25 MILLIGRAM
     Route: 048
  4. AMLODIPIN?RATIOPHARM [Concomitant]
     Active Substance: AMLODIPINE MALEATE
     Indication: HYPERTENSION
     Dosage: 5 MILLIGRAM
     Route: 048
  5. XARELTO [Concomitant]
     Active Substance: RIVAROXABAN
     Indication: PROPHYLAXIS
     Dosage: 15 MILLIGRAM
     Route: 048
  6. REVLIMID [Suspect]
     Active Substance: LENALIDOMIDE
     Indication: PLASMA CELL MYELOMA
     Route: 065
     Dates: start: 20170818
  7. PREDNISOLON [Concomitant]
     Active Substance: PREDNISOLONE
     Indication: THROMBOCYTOSIS
     Dosage: 15 MILLIGRAM
     Route: 048
     Dates: start: 20171111
  8. PAMIDRONAT?GRY [Concomitant]
     Indication: PROPHYLAXIS
     Dosage: 2 MILLIGRAM
     Route: 041
     Dates: start: 20170623
  9. DEXAMETHASONE. [Suspect]
     Active Substance: DEXAMETHASONE
     Indication: PLASMA CELL MYELOMA
     Route: 065
     Dates: start: 20170622
  10. PREDNISOLON?RATIOPHARM [Concomitant]
     Indication: THROMBOCYTOSIS
     Dosage: 20 MILLIGRAM
     Route: 048
     Dates: start: 20171001, end: 20171110
  11. PREDNISOLON?RATIOPHARM [Concomitant]
     Dosage: 50 MILLIGRAM
     Route: 048
     Dates: start: 20170928, end: 20171001
  12. VALSARTAN/HCT [Concomitant]
     Active Substance: HYDROCHLOROTHIAZIDE\VALSARTAN
     Indication: HYPERTENSION
     Dosage: 160 MILLIGRAM
     Route: 048

REACTIONS (1)
  - Dermatitis allergic [Not Recovered/Not Resolved]

NARRATIVE: CASE EVENT DATE: 20170717
